FAERS Safety Report 11823120 (Version 1)
Quarter: 2015Q4

REPORT INFORMATION
  Report Type: Spontaneous
  Country: RU (occurrence: RU)
  Receive Date: 20151210
  Receipt Date: 20151210
  Transmission Date: 20160305
  Serious: Yes (Other)
  Sender: FDA-Public Use
  Company Number: RU-ASTRAZENECA-2015SF20748

PATIENT
  Age: 67 Year
  Sex: Female

DRUGS (10)
  1. THROMBO ASS [Concomitant]
     Active Substance: ASPIRIN
     Dosage: ASPIRIN
  2. THROMBO ASS [Concomitant]
     Active Substance: ASPIRIN
  3. VEROSPIRON [Concomitant]
     Active Substance: SPIRONOLACTONE
  4. PHYSIOTENS [Concomitant]
     Active Substance: MOXONIDINE
  5. TULIP [Concomitant]
     Active Substance: ATORVASTATIN
  6. CONCOR [Concomitant]
     Active Substance: BISOPROLOL FUMARATE
  7. PRESTARIUM [Concomitant]
     Active Substance: PERINDOPRIL
  8. MONOCINQUE [Concomitant]
     Active Substance: ISOSORBIDE MONONITRATE
  9. ESOMEPRAZOLE MAGNESIUM. [Concomitant]
     Active Substance: ESOMEPRAZOLE MAGNESIUM
  10. BRILINTA [Suspect]
     Active Substance: TICAGRELOR
     Route: 048
     Dates: start: 201506

REACTIONS (4)
  - Blood pressure increased [Recovered/Resolved]
  - Cough [Recovered/Resolved]
  - Contusion [Not Recovered/Not Resolved]
  - Dyspnoea [Recovered/Resolved]

NARRATIVE: CASE EVENT DATE: 2015
